FAERS Safety Report 9002188 (Version 1)
Quarter: 2013Q1

REPORT INFORMATION
  Report Type: Spontaneous
  Country: US (occurrence: None)
  Receive Date: 20130103
  Receipt Date: 20130103
  Transmission Date: 20140127
  Serious: Yes (Other)
  Sender: FDA-Public Use
  Company Number: None

PATIENT
  Age: 67 Year
  Sex: Female
  Weight: 104.33 kg

DRUGS (1)
  1. GELNIQUE [Suspect]
     Indication: POLLAKIURIA
     Dosage: 1 PUMP  ONCE  TOP
     Route: 061
     Dates: start: 20121229, end: 20121229

REACTIONS (2)
  - Diarrhoea [None]
  - Vomiting projectile [None]
